FAERS Safety Report 9450398 (Version 2)
Quarter: 2013Q3

REPORT INFORMATION
  Report Type: Spontaneous
  Country: NL (occurrence: None)
  Receive Date: 20130807
  Receipt Date: 20130814
  Transmission Date: 20140515
  Serious: Yes (Hospitalization)
  Sender: FDA-Public Use
  Company Number: AUR-APL-2013-06435

PATIENT
  Age: 64 Year
  Sex: Male

DRUGS (6)
  1. RAMIPRIL [Suspect]
     Indication: HYPERTENSION
     Route: 048
  2. METFORMIN [Concomitant]
     Indication: PRODUCT USED FOR UNKNOWN INDICATION
  3. MACROGOL (MACROGOL) [Concomitant]
  4. ACETAMINOPHEN (PARACETAMOL) [Concomitant]
  5. ASPIRIN (ACETYLSALICYCLIC ACID) [Concomitant]
  6. FUROSEMIDE [Suspect]
     Indication: PRODUCT USED FOR UNKNOWN INDICATION

REACTIONS (5)
  - Hypotension [None]
  - Angina unstable [None]
  - Dyspnoea [None]
  - Nausea [None]
  - Fall [None]
